FAERS Safety Report 14741069 (Version 1)
Quarter: 2018Q2

REPORT INFORMATION
  Report Type: Spontaneous
  Country: KR (occurrence: KR)
  Receive Date: 20180410
  Receipt Date: 20180410
  Transmission Date: 20180711
  Serious: Yes (Other)
  Sender: FDA-Public Use
  Company Number: KR-LEO PHARMA-308375

PATIENT
  Age: 52 Year
  Sex: Female

DRUGS (2)
  1. CORTICOSTEROID [Concomitant]
     Active Substance: CORTICOSTEROID NOS
     Indication: VITILIGO
     Route: 061
  2. PROTOPIC [Suspect]
     Active Substance: TACROLIMUS
     Indication: VITILIGO
     Route: 061

REACTIONS (2)
  - Product use in unapproved indication [Unknown]
  - Porokeratosis [Unknown]
